FAERS Safety Report 23765762 (Version 2)
Quarter: 2024Q2

REPORT INFORMATION
  Report Type: Spontaneous
  Country: US (occurrence: US)
  Receive Date: 20240421
  Receipt Date: 20240531
  Transmission Date: 20240716
  Serious: No
  Sender: FDA-Public Use
  Company Number: US-GSKCCFUS-Case-01984732_AE-110199

PATIENT
  Sex: Male
  Weight: 83.447 kg

DRUGS (1)
  1. ARNUITY ELLIPTA [Suspect]
     Active Substance: FLUTICASONE FUROATE
     Indication: Asthma
     Dosage: 1 PUFF(S), QD, 100MCG
     Route: 055
     Dates: start: 202402

REACTIONS (2)
  - Wrong technique in device usage process [Unknown]
  - Device use error [Unknown]
